FAERS Safety Report 8864932 (Version 1)
Quarter: 2012Q4

REPORT INFORMATION
  Report Type: 
  Country: US (occurrence: US)
  Receive Date: 20121024
  Receipt Date: 20121024
  Transmission Date: 20130627
  Serious: Yes (Other)
  Sender: FDA-Public Use
  Company Number: US-AMGEN-USASP2012000189

PATIENT
  Age: 65 Year
  Sex: Male

DRUGS (4)
  1. ENBREL [Suspect]
     Indication: PRODUCT USED FOR UNKNOWN INDICATION
     Dosage: 50 mg, qwk
     Route: 058
  2. NAPROXEN [Concomitant]
     Dosage: 500 mg, UNK
  3. TYLENOL WITH CODEINE NO.3 [Concomitant]
     Dosage: UNK
  4. UROXATRAL [Concomitant]
     Dosage: 10 mg, UNK

REACTIONS (1)
  - Lymphoma [Unknown]
